FAERS Safety Report 19453453 (Version 1)
Quarter: 2021Q2

REPORT INFORMATION
  Report Type: Spontaneous
  Country: FR (occurrence: FR)
  Receive Date: 20210623
  Receipt Date: 20210623
  Transmission Date: 20210717
  Serious: Yes (Other)
  Sender: FDA-Public Use
  Company Number: FR-ACCORD-229019

PATIENT
  Age: 89 Year
  Sex: Female
  Weight: 84 kg

DRUGS (5)
  1. SIMVASTATIN. [Suspect]
     Active Substance: SIMVASTATIN
     Indication: MEDICATION ERROR
     Dates: start: 20210331, end: 20210331
  2. PLAVIX [Suspect]
     Active Substance: CLOPIDOGREL BISULFATE
     Indication: MEDICATION ERROR
     Dates: start: 20210331, end: 20210331
  3. CLOZAPINE. [Suspect]
     Active Substance: CLOZAPINE
     Indication: MEDICATION ERROR
     Dates: start: 20210331, end: 20210331
  4. PRAZEPAM [Suspect]
     Active Substance: PRAZEPAM
     Indication: MEDICATION ERROR
     Dates: start: 20210331, end: 20210331
  5. DAFALGAN [Suspect]
     Active Substance: ACETAMINOPHEN
     Indication: MEDICATION ERROR
     Dates: start: 20210331, end: 20210331

REACTIONS (4)
  - Hypotension [Recovered/Resolved]
  - Wrong patient received product [Unknown]
  - Lung disorder [Recovered/Resolved]
  - Coma [Recovered/Resolved]

NARRATIVE: CASE EVENT DATE: 20210331
